FAERS Safety Report 8361887-3 (Version None)
Quarter: 2012Q2

REPORT INFORMATION
  Report Type: 
  Country: None (occurrence: None)
  Receive Date: 20120515
  Receipt Date: 20120502
  Transmission Date: 20120825
  Serious: Yes (Other)
  Sender: FDA-Public Use
  Company Number: US-JNJFOC-20120506386

PATIENT

DRUGS (1)
  1. IBUPROFEN [Suspect]
     Indication: PROCEDURAL PAIN
     Route: 065

REACTIONS (10)
  - HYPERTENSION [None]
  - PHARYNGITIS [None]
  - DIZZINESS [None]
  - HEADACHE [None]
  - HAEMATOMA [None]
  - TEARFULNESS [None]
  - TOOTH INFECTION [None]
  - VOMITING [None]
  - ALVEOLAR OSTEITIS [None]
  - NAUSEA [None]
